FAERS Safety Report 18443358 (Version 11)
Quarter: 2021Q3

REPORT INFORMATION
  Report Type: Report from Study
  Country: US (occurrence: US)
  Receive Date: 20201029
  Receipt Date: 20210802
  Transmission Date: 20211014
  Serious: Yes (Other)
  Sender: FDA-Public Use
  Company Number: US-INCYTE CORPORATION-2020IN010469

PATIENT

DRUGS (26)
  1. JAKAFI [Suspect]
     Active Substance: RUXOLITINIB
     Dosage: 10 MILLIGRAM, BID
     Route: 048
  2. TYLENOL EXTRA STRENGTH [Concomitant]
     Active Substance: ACETAMINOPHEN
     Indication: PRODUCT USED FOR UNKNOWN INDICATION
     Route: 065
  3. JAKAFI [Suspect]
     Active Substance: RUXOLITINIB
     Dosage: 10 MILLIGRAM, BID
     Route: 048
  4. PROCRIT [Suspect]
     Active Substance: ERYTHROPOIETIN
     Indication: HAEMOGLOBIN DECREASED
     Dosage: EVERY TWO WEEKS
     Route: 065
  5. SINGULAIR [Concomitant]
     Active Substance: MONTELUKAST SODIUM
     Indication: PRODUCT USED FOR UNKNOWN INDICATION
     Route: 065
  6. TYLENOL PM [Concomitant]
     Active Substance: ACETAMINOPHEN\DIPHENHYDRAMINE
     Indication: PRODUCT USED FOR UNKNOWN INDICATION
     Dosage: UNK UNK, QHS
     Route: 065
  7. JAKAFI [Suspect]
     Active Substance: RUXOLITINIB
     Dosage: 10 MILLIGRAM, BID
     Route: 048
  8. ALLOPURINOL. [Concomitant]
     Active Substance: ALLOPURINOL
     Indication: PRODUCT USED FOR UNKNOWN INDICATION
     Route: 065
  9. FLORASTOR [SACCHAROMYCES BOULARDII] [Concomitant]
     Indication: PRODUCT USED FOR UNKNOWN INDICATION
     Route: 065
  10. JAKAFI [Suspect]
     Active Substance: RUXOLITINIB
     Dosage: 10 MILLIGRAM, BID
     Route: 048
  11. JAKAFI [Suspect]
     Active Substance: RUXOLITINIB
     Dosage: 15 MILLIGRAM, BID
     Route: 048
     Dates: start: 20201016
  12. CALCIUM CITRATE + D [Concomitant]
     Active Substance: CALCIUM CITRATE\CHOLECALCIFEROL
     Indication: PRODUCT USED FOR UNKNOWN INDICATION
     Route: 065
  13. JAKAFI [Suspect]
     Active Substance: RUXOLITINIB
     Dosage: 10 MILLIGRAM, BID
     Route: 048
     Dates: start: 20200730
  14. JAKAFI [Suspect]
     Active Substance: RUXOLITINIB
     Dosage: 5 MILLIGRAM, BID
     Route: 065
  15. JAKAFI [Suspect]
     Active Substance: RUXOLITINIB
     Dosage: 10 MILLIGRAM, BID
     Route: 048
     Dates: start: 20201016, end: 20210723
  16. JAKAFI [Suspect]
     Active Substance: RUXOLITINIB
     Dosage: 15 MILLIGRAM, BID
     Route: 065
  17. OMEPRAZOLE. [Concomitant]
     Active Substance: OMEPRAZOLE
     Indication: PRODUCT USED FOR UNKNOWN INDICATION
     Route: 065
  18. JAKAFI [Suspect]
     Active Substance: RUXOLITINIB
     Dosage: 5 MILLIGRAM, QD
     Route: 065
  19. LISINOPRIL. [Concomitant]
     Active Substance: LISINOPRIL
     Indication: PRODUCT USED FOR UNKNOWN INDICATION
     Route: 065
  20. SIMVASTATIN. [Concomitant]
     Active Substance: SIMVASTATIN
     Indication: PRODUCT USED FOR UNKNOWN INDICATION
     Route: 065
  21. COVID?19 VACCINE [Concomitant]
     Indication: PRODUCT USED FOR UNKNOWN INDICATION
     Dosage: UNK
     Route: 065
     Dates: start: 20210108
  22. JAKAFI [Suspect]
     Active Substance: RUXOLITINIB
     Indication: MYELOFIBROSIS
     Dosage: 10 MILLIGRAM, BID
     Route: 048
     Dates: start: 20161016
  23. DICYCLOMINE HCL [Concomitant]
     Active Substance: DICYCLOMINE HYDROCHLORIDE
     Indication: PRODUCT USED FOR UNKNOWN INDICATION
     Route: 065
  24. FINASTERIDE. [Concomitant]
     Active Substance: FINASTERIDE
     Indication: PRODUCT USED FOR UNKNOWN INDICATION
     Route: 065
  25. TERAZOSIN HCL [Concomitant]
     Active Substance: TERAZOSIN HYDROCHLORIDE
     Indication: PRODUCT USED FOR UNKNOWN INDICATION
     Route: 065
  26. FIBER [Concomitant]
     Active Substance: PSYLLIUM HUSK
     Indication: PRODUCT USED FOR UNKNOWN INDICATION
     Route: 065

REACTIONS (28)
  - Haemoglobin decreased [Not Recovered/Not Resolved]
  - Platelet count abnormal [Unknown]
  - Sleep disorder [Unknown]
  - Gait disturbance [Unknown]
  - White blood cell count decreased [Unknown]
  - Abdominal mass [Unknown]
  - Pus in stool [Unknown]
  - Pain [Recovered/Resolved]
  - Weight increased [Unknown]
  - Scoliosis [Unknown]
  - Abnormal faeces [Unknown]
  - Rash macular [Recovered/Resolved]
  - Squamous cell carcinoma [Unknown]
  - Hypoacusis [Unknown]
  - Diarrhoea [Unknown]
  - Dyspnoea exertional [Unknown]
  - Drug ineffective [Not Recovered/Not Resolved]
  - Abdominal distension [Unknown]
  - White blood cell count abnormal [Unknown]
  - Asthenia [Unknown]
  - Splenomegaly [Not Recovered/Not Resolved]
  - Intervertebral disc disorder [Unknown]
  - Spleen disorder [Unknown]
  - Myeloproliferative neoplasm [Unknown]
  - Red blood cell count abnormal [Unknown]
  - Increased appetite [Unknown]
  - Abdominal pain upper [Unknown]
  - Back disorder [Unknown]

NARRATIVE: CASE EVENT DATE: 20201022
